FAERS Safety Report 4530488-7 (Version None)
Quarter: 2004Q4

REPORT INFORMATION
  Report Type: 
  Country: None (occurrence: None)
  Receive Date: 20041216
  Receipt Date: 20041216
  Transmission Date: 20050328
  Serious: Yes (Other)
  Sender: FDA-Public Use
  Company Number: None

PATIENT
  Age: 46 Year
  Sex: Female
  Weight: 49.8957 kg

DRUGS (1)
  1. BOTOX [Suspect]
     Indication: SKIN WRINKLING
     Dates: start: 20041126, end: 20041126

REACTIONS (5)
  - EYELID DISORDER [None]
  - HYPOTONIA [None]
  - INJECTION SITE REACTION [None]
  - PREMATURE AGEING [None]
  - SKIN WRINKLING [None]
